FAERS Safety Report 8482444-4 (Version None)
Quarter: 2012Q3

REPORT INFORMATION
  Report Type: 
  Country: None (occurrence: None)
  Receive Date: 20120702
  Receipt Date: 20120622
  Transmission Date: 20120928
  Serious: Yes (Hospitalization)
  Sender: FDA-Public Use
  Company Number: US-GLAXOSMITHKLINE-B0724414A

PATIENT
  Age: 73 Year
  Sex: Male
  Weight: 88.6 kg

DRUGS (7)
  1. TOPROL-XL [Concomitant]
  2. HYDROCHLOROTHIAZIDE [Concomitant]
  3. AVANDIA [Suspect]
     Indication: DIABETES MELLITUS
     Dosage: 4MG PER DAY
     Route: 048
     Dates: start: 20010323, end: 20060304
  4. PROCRIT [Concomitant]
  5. GLYBURIDE [Concomitant]
  6. ZOCOR [Concomitant]
  7. LEVOTHYROXINE SODIUM [Concomitant]

REACTIONS (3)
  - MYOCARDIAL INFARCTION [None]
  - CARDIAC FAILURE CONGESTIVE [None]
  - DEPRESSION [None]
